FAERS Safety Report 8890989 (Version 3)
Quarter: 2013Q3

REPORT INFORMATION
  Report Type: Spontaneous
  Country: BR (occurrence: BR)
  Receive Date: 20121107
  Receipt Date: 20130813
  Transmission Date: 20140515
  Serious: Yes (Life-Threatening, Hospitalization, Other)
  Sender: FDA-Public Use
  Company Number: BR-AMGEN-BRACT2011069937

PATIENT
  Age: 64 Year
  Sex: Female
  Weight: 70 kg

DRUGS (4)
  1. ENBREL [Suspect]
     Indication: RHEUMATOID ARTHRITIS
     Dosage: 25 MG, 2 TIMES/WK
     Route: 058
     Dates: start: 2010
  2. ENBREL [Suspect]
     Dosage: UNK
     Route: 065
  3. METHOTREXATE [Concomitant]
     Indication: RHEUMATOID ARTHRITIS
     Dosage: UNK
     Dates: end: 20111010
  4. REUQUINOL [Concomitant]
     Indication: RHEUMATOID ARTHRITIS
     Dosage: UNK

REACTIONS (6)
  - Impaired healing [Recovering/Resolving]
  - Wound infection [Recovering/Resolving]
  - Skin ulcer [Recovered/Resolved]
  - Haemorrhage [Recovering/Resolving]
  - Cerebrovascular accident [Unknown]
  - Limb injury [Recovered/Resolved]
